FAERS Safety Report 7784407-0 (Version None)
Quarter: 2011Q3

REPORT INFORMATION
  Report Type: 
  Country: None (occurrence: None)
  Receive Date: 20110928
  Receipt Date: 20110926
  Transmission Date: 20111222
  Serious: Yes (Death)
  Sender: FDA-Public Use
  Company Number: PHHY2010NL85248

PATIENT
  Sex: Female
  Weight: 57 kg

DRUGS (5)
  1. LOPERAMIDE HCL [Concomitant]
     Dosage: UNK UKN, UNK
     Route: 065
  2. RANITIDINE [Concomitant]
     Dosage: UNK UKN, UNK
     Route: 065
  3. SANDOSTATIN LAR [Suspect]
     Indication: METASTATIC CARCINOID TUMOUR
     Dosage: 40 MG, UNK
     Route: 030
     Dates: start: 20080201
  4. SANDOSTATIN LAR [Suspect]
     Dosage: 30 MG, ONCE PER 4 WEEKS
     Route: 065
     Dates: start: 20080320
  5. SANDOSTATIN LAR [Suspect]
     Dosage: 30 MG, ONCE PER 4 WEEKS
     Route: 065
     Dates: start: 20081002

REACTIONS (1)
  - DEATH [None]
